FAERS Safety Report 4802234-0 (Version None)
Quarter: 2005Q4

REPORT INFORMATION
  Report Type: 
  Country: None (occurrence: None)
  Receive Date: 20051017
  Receipt Date: 20051017
  Transmission Date: 20060501
  Serious: Yes (Other)
  Sender: FDA-Public Use
  Company Number: None

PATIENT
  Age: 41 Year
  Sex: Female

DRUGS (1)
  1. TUBERCULIN, PURIFIED PROTEIN DERIVATIVE (AVENTIS PASTEUR) [Suspect]
     Indication: TUBERCULIN TEST
     Dosage: 0.1 ML INTRADERMAL
     Route: 023

REACTIONS (4)
  - EYE SWELLING [None]
  - HEART RATE INCREASED [None]
  - HYPERSENSITIVITY [None]
  - RASH [None]
